FAERS Safety Report 8106418-8 (Version None)
Quarter: 2012Q1

REPORT INFORMATION
  Report Type: 
  Country: None (occurrence: None)
  Receive Date: 20120202
  Receipt Date: 20120124
  Transmission Date: 20120608
  Serious: Yes (Hospitalization)
  Sender: FDA-Public Use
  Company Number: US-JNJFOC-20120110354

PATIENT
  Sex: Male

DRUGS (1)
  1. XARELTO [Suspect]
     Indication: THROMBOSIS PROPHYLAXIS
     Route: 065

REACTIONS (2)
  - PULMONARY EMBOLISM [None]
  - DEEP VEIN THROMBOSIS [None]
